FAERS Safety Report 5065901-2 (Version None)
Quarter: 2006Q3

REPORT INFORMATION
  Report Type: 
  Country: None (occurrence: None)
  Receive Date: 20060728
  Receipt Date: 20060728
  Transmission Date: 20061208
  Serious: No
  Sender: FDA-Public Use
  Company Number: None

PATIENT
  Age: 56 Year
  Sex: Female
  Weight: 49.4421 kg

DRUGS (1)
  1. SEROQUEL [Suspect]
     Indication: PARANOIA
     Dosage: 300 MG   DAILY   PO
     Route: 048
     Dates: start: 20050701, end: 20050727

REACTIONS (3)
  - PANIC ATTACK [None]
  - SEDATION [None]
  - SENSATION OF HEAVINESS [None]
